FAERS Safety Report 5059242-7 (Version None)
Quarter: 2006Q2

REPORT INFORMATION
  Report Type: 
  Country: None (occurrence: None)
  Receive Date: 20060629
  Receipt Date: 20060413
  Transmission Date: 20061013
  Serious: No
  Sender: FDA-Public Use
  Company Number: PHEH2006US04943

PATIENT
  Age: 47 Year
  Sex: Female

DRUGS (1)
  1. ENABLEX [Suspect]
     Indication: BLADDER SPASM
     Dosage: 15 MG, QD
     Dates: start: 20060412

REACTIONS (3)
  - DRY MOUTH [None]
  - DYSPHAGIA [None]
  - DYSPHONIA [None]
